FAERS Safety Report 15592481 (Version 1)
Quarter: 2018Q4

REPORT INFORMATION
  Report Type: Spontaneous
  Country: FR (occurrence: FR)
  Receive Date: 20181106
  Receipt Date: 20181106
  Transmission Date: 20190205
  Serious: Yes (Death)
  Sender: FDA-Public Use
  Company Number: FR-MYLANLABS-2018M1082440

PATIENT
  Age: 62 Year
  Sex: Female
  Weight: 52 kg

DRUGS (6)
  1. ONDANSETRON ACCORD [Suspect]
     Active Substance: ONDANSETRON
     Indication: ANTIEMETIC SUPPORTIVE CARE
     Dosage: 8 MG, QD
     Route: 042
     Dates: start: 20180517, end: 20180517
  2. METHYLPREDNISOLONE MYLAN [Suspect]
     Active Substance: METHYLPREDNISOLONE
     Indication: ANTIEMETIC SUPPORTIVE CARE
     Dosage: 52 MG, QD
     Route: 042
     Dates: start: 20180517, end: 20180517
  3. CISPLATIN. [Suspect]
     Active Substance: CISPLATIN
     Indication: LUNG ADENOCARCINOMA
     Dosage: 115 MG, QD
     Route: 042
     Dates: start: 20180517, end: 20180517
  4. AVASTIN [Suspect]
     Active Substance: BEVACIZUMAB
     Indication: LUNG ADENOCARCINOMA
     Dosage: 390 MG, QD
     Route: 042
     Dates: start: 20180517, end: 20180517
  5. ALIMTA [Suspect]
     Active Substance: PEMETREXED DISODIUM
     Indication: LUNG ADENOCARCINOMA
     Dosage: 765 MG, QD
     Route: 042
     Dates: start: 20180517, end: 20180517
  6. EMEND [Suspect]
     Active Substance: APREPITANT
     Indication: ANTIEMETIC SUPPORTIVE CARE
     Dosage: 125 MG, QD
     Route: 048
     Dates: start: 20180517, end: 20180517

REACTIONS (4)
  - Aplasia [Fatal]
  - Acute kidney injury [Fatal]
  - Sepsis [Fatal]
  - Hyperkalaemia [Fatal]

NARRATIVE: CASE EVENT DATE: 20180525
